FAERS Safety Report 7898925-8 (Version None)
Quarter: 2011Q4

REPORT INFORMATION
  Report Type: 
  Country: None (occurrence: None)
  Receive Date: 20111107
  Receipt Date: 20111102
  Transmission Date: 20120403
  Serious: Yes (Life-Threatening, Other)
  Sender: FDA-Public Use
  Company Number: US-ASTRAZENECA-2011SE49566

PATIENT
  Age: 59 Year
  Sex: Male
  Weight: 122.5 kg

DRUGS (4)
  1. XANAX [Concomitant]
     Indication: ANXIOLYTIC THERAPY
     Route: 048
     Dates: start: 20090101
  2. NEXIUM [Suspect]
     Indication: DUODENAL ULCER
     Route: 048
  3. NEXIUM [Suspect]
     Indication: GASTROOESOPHAGEAL REFLUX DISEASE
     Route: 048
  4. PAIN PILLS [Concomitant]

REACTIONS (14)
  - GASTRIC PERFORATION [None]
  - LYMPHOMA [None]
  - COLITIS ULCERATIVE [None]
  - DRUG DOSE OMISSION [None]
  - CACHEXIA [None]
  - RECTAL CANCER [None]
  - COLON CANCER [None]
  - PEPTIC ULCER HAEMORRHAGE [None]
  - APPARENT DEATH [None]
  - PROSTATE CANCER [None]
  - IMPAIRED GASTRIC EMPTYING [None]
  - ULCER [None]
  - AMNESIA [None]
  - INSOMNIA [None]
